FAERS Safety Report 25610406 (Version 1)
Quarter: 2025Q3

REPORT INFORMATION
  Report Type: Spontaneous
  Country: EU (occurrence: EU)
  Receive Date: 20250728
  Receipt Date: 20250728
  Transmission Date: 20251020
  Serious: Yes (Death, Hospitalization)
  Sender: ORGANON
  Company Number: None

PATIENT
  Age: 90 Year
  Sex: Female

DRUGS (11)
  1. FOSAVANCE [Suspect]
     Active Substance: ALENDRONATE SODIUM\CHOLECALCIFEROL
     Indication: Product administration error
     Dosage: 1 TABLET AT 8 A.M. (70 MG/5600 UI)
     Route: 048
     Dates: start: 20250605, end: 20250605
  2. BISOPROLOL FUMARATE [Suspect]
     Active Substance: BISOPROLOL FUMARATE
     Indication: Product administration error
     Dosage: 1 TABLET AT 8 A.M. (SCORED FILM-COATED TABLET)
     Route: 048
     Dates: start: 20250605, end: 20250605
  3. LERCANIDIPINE HYDROCHLORIDE [Suspect]
     Active Substance: LERCANIDIPINE HYDROCHLORIDE
     Indication: Product administration error
     Dosage: 1 TABLET AT 8 A.M. (SCORED FILM-COATED TABLET)
     Route: 048
     Dates: start: 20250605, end: 20250605
  4. LEVOTHYROXINE SODIUM\LIOTHYRONINE SODIUM [Suspect]
     Active Substance: LEVOTHYROXINE SODIUM\LIOTHYRONINE SODIUM
     Indication: Product administration error
     Route: 048
     Dates: start: 20250605, end: 20250605
  5. HYDROCHLOROTHIAZIDE [Suspect]
     Active Substance: HYDROCHLOROTHIAZIDE
     Indication: Product administration error
     Dosage: 1 TABLET AT 8 A.M.
     Route: 048
     Dates: start: 20250605, end: 20250605
  6. ELIQUIS [Suspect]
     Active Substance: APIXABAN
  7. FUROSEMIDE [Suspect]
     Active Substance: FUROSEMIDE
  8. VERAPAMIL HYDROCHLORIDE [Suspect]
     Active Substance: VERAPAMIL HYDROCHLORIDE
  9. DAPAGLIFLOZIN [Suspect]
     Active Substance: DAPAGLIFLOZIN
  10. POTASSIUM CHLORIDE [Suspect]
     Active Substance: POTASSIUM CHLORIDE
  11. DULOXETINE HYDROCHLORIDE [Suspect]
     Active Substance: DULOXETINE HYDROCHLORIDE

REACTIONS (4)
  - Acute myocardial infarction [Fatal]
  - Product administration error [Fatal]
  - Wrong patient [Fatal]
  - Wrong product administered [Fatal]

NARRATIVE: CASE EVENT DATE: 20250605
